FAERS Safety Report 7550400-6 (Version None)
Quarter: 2011Q2

REPORT INFORMATION
  Report Type: 
  Country: None (occurrence: None)
  Receive Date: 20110615
  Receipt Date: 20110221
  Transmission Date: 20111010
  Serious: Yes (Other)
  Sender: FDA-Public Use
  Company Number: PT-BAYER-2011-003064

PATIENT
  Age: 40 Year

DRUGS (3)
  1. HEPARIN [Suspect]
     Dosage: DAILY DOSE 5000 U
  2. IOPROMIDE [Suspect]
     Indication: ANGIOGRAM
     Dosage: UNK
     Dates: start: 20110111, end: 20110111
  3. IOPROMIDE [Suspect]
     Indication: ARTERIOGRAM

REACTIONS (1)
  - ANGIOPATHY [None]
